FAERS Safety Report 20063095 (Version 1)
Quarter: 2021Q4

REPORT INFORMATION
  Report Type: Spontaneous
  Country: JP (occurrence: JP)
  Receive Date: 20211112
  Receipt Date: 20211112
  Transmission Date: 20220303
  Serious: Yes (Hospitalization)
  Sender: FDA-Public Use
  Company Number: JP-AMICI-2021AMILIT00026

PATIENT
  Age: 34 Year
  Sex: Male

DRUGS (4)
  1. DICLOFENAC POTASSIUM [Suspect]
     Active Substance: DICLOFENAC POTASSIUM
     Indication: Pyrexia
     Route: 065
  2. ESOMEPRAZOLE [Concomitant]
     Active Substance: ESOMEPRAZOLE
     Indication: Product used for unknown indication
     Route: 065
  3. AMOXICILLIN [Concomitant]
     Active Substance: AMOXICILLIN
     Indication: Bacterial infection
     Route: 065
  4. IBUPROFEN [Concomitant]
     Active Substance: IBUPROFEN
     Indication: Bacterial infection
     Route: 065

REACTIONS (14)
  - Tubulointerstitial nephritis and uveitis syndrome [Recovered/Resolved]
  - Illness [Recovered/Resolved]
  - Renal tubular atrophy [Recovered/Resolved]
  - Tubulointerstitial nephritis [Recovered/Resolved]
  - Eye pain [Recovered/Resolved]
  - Conjunctival hyperaemia [Recovered/Resolved]
  - Tenderness [Recovered/Resolved]
  - Tubulointerstitial nephritis [Recovered/Resolved]
  - Photophobia [Recovered/Resolved]
  - Vision blurred [Recovered/Resolved]
  - Meningitis [Recovered/Resolved]
  - Meningitis toxoplasmal [Recovered/Resolved]
  - Lymphadenopathy [Recovered/Resolved]
  - Keratic precipitates [Recovered/Resolved]
